FAERS Safety Report 5145215-2 (Version None)
Quarter: 2006Q4

REPORT INFORMATION
  Report Type: 
  Country: None (occurrence: None)
  Receive Date: 20061107
  Receipt Date: 20061023
  Transmission Date: 20070319
  Serious: Yes (Hospitalization)
  Sender: FDA-Public Use
  Company Number: US-ELI_LILLY_AND_COMPANY-US200610003971

PATIENT
  Age: 6 Month

DRUGS (6)
  1. PROZAC WEEKLY [Suspect]
     Indication: DEPRESSION
     Dosage: UNK, UNK
     Route: 050
     Dates: start: 20040101
  2. FLUOXETINE                              /N/A/ [Concomitant]
     Indication: DEPRESSION
     Dosage: 20 MG, DAILY (1/D)
     Route: 050
     Dates: start: 20020101, end: 20020101
  3. VALIUM                                  /NET/ [Concomitant]
     Route: 050
  4. REMERON [Concomitant]
     Dosage: UNK, UNK
     Route: 050
  5. ALLEGRA [Concomitant]
     Route: 050
  6. MULTI-VITAMIN [Concomitant]
     Route: 050

REACTIONS (3)
  - GASTROOESOPHAGEAL REFLUX DISEASE [None]
  - TRANSMISSION OF DRUG VIA SEMEN [None]
  - UNRESPONSIVE TO STIMULI [None]
